FAERS Safety Report 13067462 (Version 1)
Quarter: 2016Q4

REPORT INFORMATION
  Report Type: Report from Study
  Country: US (occurrence: US)
  Receive Date: 20161228
  Receipt Date: 20161228
  Transmission Date: 20170207
  Serious: Yes (Other)
  Sender: FDA-Public Use
  Company Number: PHEH2016US033638

PATIENT
  Age: 0 Day
  Sex: Female
  Weight: 2.15 kg

DRUGS (2)
  1. COSENTYX [Suspect]
     Active Substance: SECUKINUMAB
     Indication: FOETAL EXPOSURE DURING PREGNANCY
     Dosage: MATERNAL DOSE 300 MG, UNK
     Route: 064
     Dates: start: 20150402, end: 201509
  2. COSENTYX [Suspect]
     Active Substance: SECUKINUMAB
     Dosage: MATERNAL DOSE  300 MG, QMO
     Route: 064
     Dates: start: 20160715

REACTIONS (2)
  - Premature baby [Unknown]
  - Foetal exposure during pregnancy [Unknown]

NARRATIVE: CASE EVENT DATE: 20160404
